FAERS Safety Report 22142622 (Version 1)
Quarter: 2023Q1

REPORT INFORMATION
  Report Type: Spontaneous
  Country: US (occurrence: None)
  Receive Date: 20230324
  Receipt Date: 20230324
  Transmission Date: 20230418
  Serious: No
  Sender: FDA-Public Use
  Company Number: None

PATIENT
  Age: 65 Year
  Sex: Female

DRUGS (1)
  1. MAYZENT [Suspect]
     Active Substance: SIPONIMOD
     Dosage: 2 MG BID ORAL?
     Route: 048
     Dates: start: 20200528

REACTIONS (2)
  - Fall [None]
  - Product dose omission in error [None]

NARRATIVE: CASE EVENT DATE: 20230324
